FAERS Safety Report 5291108-X (Version None)
Quarter: 2007Q2

REPORT INFORMATION
  Report Type: 
  Country: None (occurrence: None)
  Receive Date: 20070409
  Receipt Date: 20070327
  Transmission Date: 20071010
  Serious: Yes (Hospitalization)
  Sender: FDA-Public Use
  Company Number: PHBS2007US05420

PATIENT
  Age: 27 Year
  Sex: Male

DRUGS (5)
  1. CLOZARIL [Suspect]
     Indication: SCHIZOPHRENIA
     Route: 065
  2. CLOZARIL [Suspect]
     Dosage: 500 MG/D
     Route: 065
  3. CLOZARIL [Suspect]
     Dosage: 900 MG/D
     Route: 065
  4. NICOTINE [Suspect]
  5. NICOTROL [Concomitant]

REACTIONS (6)
  - CONSTIPATION [None]
  - DRUG INTERACTION [None]
  - DRUG LEVEL DECREASED [None]
  - HALLUCINATION [None]
  - PARANOIA [None]
  - SEDATION [None]
